FAERS Safety Report 16622970 (Version 1)
Quarter: 2019Q3

REPORT INFORMATION
  Report Type: Spontaneous
  Country: SE (occurrence: SE)
  Receive Date: 20190723
  Receipt Date: 20190723
  Transmission Date: 20191004
  Serious: Yes (Hospitalization)
  Sender: FDA-Public Use
  Company Number: SE-TEVA-2019-SE-1081055

PATIENT
  Age: 60 Year
  Sex: Male

DRUGS (1)
  1. NAPROXEN. [Suspect]
     Active Substance: NAPROXEN
     Indication: ARTHROPATHY
     Dosage: 1000 MILLIGRAM
     Dates: start: 2019

REACTIONS (1)
  - Duodenal ulcer haemorrhage [Unknown]

NARRATIVE: CASE EVENT DATE: 20190619
